FAERS Safety Report 7405806-2 (Version None)
Quarter: 2011Q2

REPORT INFORMATION
  Report Type: 
  Country: None (occurrence: None)
  Receive Date: 20110411
  Receipt Date: 20110211
  Transmission Date: 20111010
  Serious: Yes (Other)
  Sender: FDA-Public Use
  Company Number: KR-ELI_LILLY_AND_COMPANY-KR201102003076

PATIENT
  Age: 25 Year
  Sex: Male
  Weight: 50 kg

DRUGS (2)
  1. HUMALOG MIX 75/25 [Suspect]
     Dosage: 12 U, EACH EVENING
     Route: 058
     Dates: start: 20100101
  2. HUMALOG MIX 75/25 [Suspect]
     Dosage: 20 U, EACH MORNING
     Route: 058
     Dates: start: 20100101

REACTIONS (1)
  - CONVULSION [None]
